FAERS Safety Report 7486369-2 (Version None)
Quarter: 2011Q2

REPORT INFORMATION
  Report Type: 
  Country: None (occurrence: None)
  Receive Date: 20110516
  Receipt Date: 20110516
  Transmission Date: 20111010
  Serious: Yes (Hospitalization)
  Sender: FDA-Public Use
  Company Number: None

PATIENT
  Age: 61 Year
  Sex: Male
  Weight: 113.9 kg

DRUGS (2)
  1. LISINOPRIL [Suspect]
     Dosage: 40 MG EVERY DAY PO
     Route: 048
     Dates: start: 20100105, end: 20110328
  2. IBUPROFEN [Suspect]
     Dosage: 600 MG BID PO
     Route: 048
     Dates: start: 20110301, end: 20110314

REACTIONS (1)
  - RENAL FAILURE ACUTE [None]
